FAERS Safety Report 14753201 (Version 4)
Quarter: 2019Q3

REPORT INFORMATION
  Report Type: Spontaneous
  Country: JP (occurrence: JP)
  Receive Date: 20180412
  Receipt Date: 20190828
  Transmission Date: 20191004
  Serious: Yes (Hospitalization, Other)
  Sender: FDA-Public Use
  Company Number: JP-SA-2018SA106257

PATIENT
  Age: 88 Year
  Sex: Female
  Weight: 40 kg

DRUGS (5)
  1. LANTUS SOLOSTAR [Suspect]
     Active Substance: INSULIN GLARGINE
     Dosage: 10 UNITS IN MORNING
     Route: 058
     Dates: start: 2009
  2. INSULIN LISPRO [Suspect]
     Active Substance: INSULIN LISPRO
     Indication: PRODUCT USED FOR UNKNOWN INDICATION
     Dosage: 2 - 3 UNITS, TID
     Route: 065
     Dates: start: 200910, end: 20170602
  3. LANTUS SOLOSTAR [Suspect]
     Active Substance: INSULIN GLARGINE
     Dosage: 10 UNITS
     Route: 058
     Dates: start: 2009
  4. LANTUS SOLOSTAR [Suspect]
     Active Substance: INSULIN GLARGINE
     Indication: TYPE 1 DIABETES MELLITUS
     Dosage: 6 U, QD
     Route: 058
     Dates: start: 200910, end: 20170427
  5. NOVORAPID [Concomitant]
     Active Substance: INSULIN ASPART
     Indication: TYPE 1 DIABETES MELLITUS
     Dosage: 4-4-2 UNITS
     Route: 065
     Dates: start: 2009

REACTIONS (13)
  - Lactic acidosis [Recovering/Resolving]
  - Malaise [Recovered/Resolved]
  - Hyperglycaemia [Recovering/Resolving]
  - Cardiac failure chronic [Recovered/Resolved]
  - Dizziness [Recovered/Resolved]
  - Diabetes mellitus inadequate control [Recovering/Resolving]
  - Blood pH decreased [Recovered/Resolved]
  - Malaise [Recovering/Resolving]
  - Atrioventricular block complete [Recovered/Resolved]
  - Hypoglycaemia [Recovering/Resolving]
  - Blood lactic acid increased [Recovered/Resolved]
  - Anti-insulin antibody increased [Unknown]
  - Decreased appetite [Recovering/Resolving]

NARRATIVE: CASE EVENT DATE: 20170404
